FAERS Safety Report 26202662 (Version 1)
Quarter: 2025Q4

REPORT INFORMATION
  Report Type: Spontaneous
  Country: US (occurrence: US)
  Receive Date: 20251226
  Receipt Date: 20251226
  Transmission Date: 20260117
  Serious: Yes (Death, Hospitalization, Other)
  Sender: IPCA
  Company Number: US-IPCA LABORATORIES LIMITED-IPC-2025-US-003649

PATIENT

DRUGS (1)
  1. HYDROXYCHLOROQUINE [Suspect]
     Active Substance: HYDROXYCHLOROQUINE
     Indication: Rheumatoid arthritis
     Dosage: 200 MILLIGRAM, QD
     Route: 065

REACTIONS (19)
  - Cardiomyopathy [Fatal]
  - Sinoatrial block [Fatal]
  - Cardiogenic shock [Fatal]
  - Cardiac arrest [Fatal]
  - Brain injury [Fatal]
  - Mitral valve incompetence [Fatal]
  - Tricuspid valve incompetence [Fatal]
  - Conduction disorder [Fatal]
  - Atrioventricular block [Fatal]
  - Ventricular hypertrophy [Fatal]
  - Myopathy [Fatal]
  - Bundle branch block left [Fatal]
  - Right ventricular dysfunction [Fatal]
  - Atrioventricular block [Fatal]
  - Fibrosis [Fatal]
  - Dizziness [Fatal]
  - Fatigue [Fatal]
  - Asthenia [Fatal]
  - Toxicity to various agents [Fatal]
